FAERS Safety Report 16032988 (Version 3)
Quarter: 2019Q1

REPORT INFORMATION
  Report Type: Spontaneous
  Country: GB (occurrence: GB)
  Receive Date: 20190305
  Receipt Date: 20190313
  Transmission Date: 20190418
  Serious: Yes (Death, Life-Threatening, Hospitalization)
  Sender: FDA-Public Use
  Company Number: GB-ACCORD-110235

PATIENT
  Age: 43 Year
  Sex: Male
  Weight: 98 kg

DRUGS (6)
  1. PIROXICAM. [Concomitant]
     Active Substance: PIROXICAM
  2. FLUCLOXACILLIN [Concomitant]
     Active Substance: FLUCLOXACILLIN
  3. LISINOPRIL. [Suspect]
     Active Substance: LISINOPRIL
     Indication: ESSENTIAL HYPERTENSION
     Route: 048
     Dates: start: 20171218, end: 20180731
  4. COLCHICINE. [Concomitant]
     Active Substance: COLCHICINE
  5. LANSOPRAZOLE. [Concomitant]
     Active Substance: LANSOPRAZOLE
  6. ACIDEX [Concomitant]
     Active Substance: CALCIUM CARBONATE\SODIUM ALGINATE\SODIUM BICARBONATE

REACTIONS (7)
  - Loss of consciousness [Fatal]
  - Syncope [Fatal]
  - Respiratory arrest [Fatal]
  - Seizure [Fatal]
  - Angioedema [Fatal]
  - Dyspnoea [Fatal]
  - Brain hypoxia [Fatal]

NARRATIVE: CASE EVENT DATE: 20180731
